FAERS Safety Report 14856937 (Version 2)
Quarter: 2018Q4

REPORT INFORMATION
  Report Type: Spontaneous
  Country: US (occurrence: US)
  Receive Date: 20180507
  Receipt Date: 20181010
  Transmission Date: 20190204
  Serious: No
  Sender: FDA-Public Use
  Company Number: US-ROCHE-2053680

PATIENT
  Sex: Female

DRUGS (16)
  1. ESBRIET [Suspect]
     Active Substance: PIRFENIDONE
     Indication: IDIOPATHIC PULMONARY FIBROSIS
     Dosage: ONGOING
     Route: 048
     Dates: start: 20170626
  2. ESBRIET [Suspect]
     Active Substance: PIRFENIDONE
     Dosage: ONGOING
     Route: 048
     Dates: start: 201706
  3. ESCITALOPRAM OXALATE. [Concomitant]
     Active Substance: ESCITALOPRAM OXALATE
  4. ESBRIET [Suspect]
     Active Substance: PIRFENIDONE
     Dosage: ONGOING
     Route: 048
     Dates: start: 20170628
  5. AMLODIPINE BESYLATE. [Concomitant]
     Active Substance: AMLODIPINE BESYLATE
  6. AMOXICILLIN/CLAVULANATE POTASSIUM [Concomitant]
     Active Substance: AMOXICILLIN\CLAVULANATE POTASSIUM
  7. ATORVASTATIN CALCIUM. [Concomitant]
     Active Substance: ATORVASTATIN CALCIUM
  8. ACETAMINOPHEN/OXYCODONE [Concomitant]
     Active Substance: ACETAMINOPHEN\OXYCODONE HYDROCHLORIDE
  9. HIZENTRA [Concomitant]
     Active Substance: HUMAN IMMUNOGLOBULIN G
     Dosage: 10GM/50ML
     Route: 065
  10. IBUPROFEN. [Concomitant]
     Active Substance: IBUPROFEN
  11. LISINOPRIL. [Concomitant]
     Active Substance: LISINOPRIL
  12. ACTEMRA [Suspect]
     Active Substance: TOCILIZUMAB
     Indication: PRODUCT USED FOR UNKNOWN INDICATION
     Route: 065
  13. LAMOTRIGINE. [Concomitant]
     Active Substance: LAMOTRIGINE
  14. TRAZODONE HYDROCHLORIDE. [Concomitant]
     Active Substance: TRAZODONE HYDROCHLORIDE
  15. ESBRIET [Suspect]
     Active Substance: PIRFENIDONE
     Route: 048
     Dates: start: 20170623
  16. BUPROPION HCL [Concomitant]
     Active Substance: BUPROPION HYDROCHLORIDE

REACTIONS (1)
  - Dyspepsia [Not Recovered/Not Resolved]
